FAERS Safety Report 12646322 (Version 8)
Quarter: 2017Q1

REPORT INFORMATION
  Report Type: Report from Study
  Country: FR (occurrence: FR)
  Receive Date: 20160812
  Receipt Date: 20170106
  Transmission Date: 20170428
  Serious: Yes (Hospitalization)
  Sender: FDA-Public Use
  Company Number: FR-AMGEN-FRACT2016104221

PATIENT
  Age: 16 Year
  Sex: Female
  Weight: 55 kg

DRUGS (5)
  1. NALBUPHINE [Concomitant]
     Active Substance: NALBUPHINE
     Dosage: 0.5 TO10 MG, UNK
     Route: 042
     Dates: start: 20160530, end: 20160601
  2. CERAZETTE [Concomitant]
     Active Substance: DESOGESTREL
     Dosage: UNK
     Route: 048
     Dates: start: 201511
  3. ROMIPLOSTIM [Suspect]
     Active Substance: ROMIPLOSTIM
     Indication: IMMUNE THROMBOCYTOPENIC PURPURA
     Dosage: 0.55 ML, UNK
     Route: 058
     Dates: start: 20160114
  4. TRAMADOL. [Concomitant]
     Active Substance: TRAMADOL
     Indication: HEADACHE
     Dosage: 500 MG, UNK
     Route: 048
     Dates: start: 20160414, end: 20161010
  5. PARACETAMOL [Concomitant]
     Active Substance: ACETAMINOPHEN
     Dosage: 1 G, UNK
     Route: 048
     Dates: start: 20160114

REACTIONS (1)
  - Presyncope [Recovered/Resolved]

NARRATIVE: CASE EVENT DATE: 20160807
